FAERS Safety Report 20680287 (Version 1)
Quarter: 2022Q2

REPORT INFORMATION
  Report Type: Spontaneous
  Country: US (occurrence: US)
  Receive Date: 20220406
  Receipt Date: 20220406
  Transmission Date: 20220721
  Serious: Yes (Other)
  Sender: FDA-Public Use
  Company Number: US-AMGEN-USASP2022056998

PATIENT
  Age: 69 Year
  Sex: Male

DRUGS (1)
  1. REPATHA [Suspect]
     Active Substance: EVOLOCUMAB
     Indication: Hyperlipidaemia
     Dosage: 140 MILLIGRAM, Q2WK
     Route: 065

REACTIONS (9)
  - Spinal cord infection [Recovered/Resolved]
  - Sepsis [Recovered/Resolved]
  - Upper limb fracture [Unknown]
  - COVID-19 [Recovering/Resolving]
  - Fall [Unknown]
  - Cardiac disorder [Recovering/Resolving]
  - Spinal stenosis [Recovered/Resolved]
  - General physical health deterioration [Unknown]
  - Accidental exposure to product [Unknown]

NARRATIVE: CASE EVENT DATE: 20210101
